FAERS Safety Report 9682614 (Version 2)
Quarter: 2013Q4

REPORT INFORMATION
  Report Type: Spontaneous
  Country: GB (occurrence: GB)
  Receive Date: 20131112
  Receipt Date: 20131112
  Transmission Date: 20140711
  Serious: Yes (Death, Life-Threatening, Hospitalization, Other)
  Sender: FDA-Public Use
  Company Number: GB-ACCORD-018986

PATIENT
  Age: 83 Year
  Sex: Male
  Weight: 52.6 kg

DRUGS (6)
  1. DONEPEZIL [Suspect]
     Indication: DEMENTIA
     Route: 048
     Dates: start: 20120723, end: 20130723
  2. CALCICHEW D3 [Concomitant]
  3. TRAMADOL [Concomitant]
  4. GANFORT [Concomitant]
     Dosage: 1 DROP AT NIGHT INTO BOTH EYES.
  5. AMITRIPTYLINE [Concomitant]
     Dosage: TAKEN AT NIGHT
  6. PROPRANOLOL [Concomitant]
     Dosage: TAKEN IN THE MORNING.

REACTIONS (1)
  - Duodenal ulcer haemorrhage [Fatal]
